FAERS Safety Report 4658629-1 (Version None)
Quarter: 2005Q2

REPORT INFORMATION
  Report Type: 
  Country: None (occurrence: None)
  Receive Date: 20050511
  Receipt Date: 20050428
  Transmission Date: 20051028
  Serious: Yes (Hospitalization)
  Sender: FDA-Public Use
  Company Number: FR-GLAXOSMITHKLINE-B0379706A

PATIENT
  Age: 53 Year
  Sex: Female

DRUGS (6)
  1. DEROXAT [Suspect]
     Dosage: 20MG TWICE PER DAY
     Route: 048
     Dates: end: 20050417
  2. EQUANIL [Concomitant]
     Dosage: 1UNIT THREE TIMES PER DAY
     Route: 048
  3. LEXOMIL [Concomitant]
     Route: 048
  4. NAPROSYN [Concomitant]
     Dosage: 500MG TWICE PER DAY
     Route: 048
  5. LAMALINE [Concomitant]
     Route: 048
  6. DAFALGAN CODEINE [Concomitant]
     Route: 048

REACTIONS (6)
  - ANAEMIA [None]
  - FALL [None]
  - HAEMATOMA [None]
  - HEAD INJURY [None]
  - HYPONATRAEMIA [None]
  - PALLOR [None]
